FAERS Safety Report 21909384 (Version 2)
Quarter: 2023Q4

REPORT INFORMATION
  Report Type: Spontaneous
  Country: US (occurrence: US)
  Receive Date: 20230125
  Receipt Date: 20231207
  Transmission Date: 20240110
  Serious: Yes (Other)
  Sender: FDA-Public Use
  Company Number: US-SK LIFE SCIENCE, INC.-SKPVG-2023-000015

PATIENT

DRUGS (12)
  1. XCOPRI [Suspect]
     Active Substance: CENOBAMATE
     Indication: Epilepsy
     Dosage: UNK
     Route: 048
     Dates: start: 20220810
  2. XCOPRI [Suspect]
     Active Substance: CENOBAMATE
     Indication: Seizure
     Dosage: 200 MILLIGRAM
     Route: 048
  3. XCOPRI [Suspect]
     Active Substance: CENOBAMATE
     Dosage: 250 MILLIGRAM, QD
     Route: 048
  4. XCOPRI [Suspect]
     Active Substance: CENOBAMATE
     Dosage: ONE 150MG TABLET FROM THE 100MG/150MG DOSE PACK LEFT OVER FROM THE 250MG PREVIOUS DOSING. SHE IS ALS
     Route: 048
     Dates: start: 20221228
  5. XCOPRI [Suspect]
     Active Substance: CENOBAMATE
     Dosage: 400MG ONCE DAILY AT NIGHT
     Route: 048
  6. LAMOTRIGINE [Concomitant]
     Active Substance: LAMOTRIGINE
     Indication: Product used for unknown indication
     Dosage: 150 MILLIGRAM, IN THE MORNING AND 150MG AT NIGHT
     Route: 065
  7. PRAVASTATIN [Concomitant]
     Active Substance: PRAVASTATIN
     Indication: Product used for unknown indication
     Dosage: 10 MILLIGRAM
     Route: 065
  8. PRAVASTATIN [Concomitant]
     Active Substance: PRAVASTATIN
     Dosage: 20 MILLIGRAM
     Route: 065
  9. LEVOTHYROXINE [Concomitant]
     Active Substance: LEVOTHYROXINE
     Indication: Product used for unknown indication
     Dosage: 137 MICROGRAM
     Route: 065
  10. TERBINAFINE [Concomitant]
     Active Substance: TERBINAFINE
     Indication: Fungal infection
     Dosage: 250MG FOR A WEEK, THEN OFF 21 DAYS, THEN REPEAT
     Route: 065
  11. ZINC [Concomitant]
     Active Substance: PYRITHIONE ZINC\ZINC\ZINC CHLORIDE
     Indication: Product used for unknown indication
     Dosage: 30 MILLIGRAM DAILY
     Route: 065
  12. VITAMIN D NOS [Concomitant]
     Active Substance: VITAMIN D NOS
     Indication: Product used for unknown indication
     Dosage: 10000; SHE TAKES ONE PILL, THEN NOT FOR 2 DAYS, THEN SHE TAKES IT, THEN NOT FOR 2 MORE DAYS
     Route: 065

REACTIONS (17)
  - Loss of consciousness [Recovering/Resolving]
  - Drug intolerance [Recovering/Resolving]
  - Poor quality sleep [Recovering/Resolving]
  - Dysgraphia [Recovering/Resolving]
  - Hypokinesia [Recovering/Resolving]
  - Seizure [Unknown]
  - Bradykinesia [Not Recovered/Not Resolved]
  - Feeling abnormal [Not Recovered/Not Resolved]
  - Amnesia [Recovering/Resolving]
  - Headache [Recovering/Resolving]
  - Dizziness [Recovering/Resolving]
  - Dysarthria [Not Recovered/Not Resolved]
  - Lethargy [Recovering/Resolving]
  - Fatigue [Recovering/Resolving]
  - Tremor [Recovering/Resolving]
  - Delusion [Recovering/Resolving]
  - Confusional state [Not Recovered/Not Resolved]

NARRATIVE: CASE EVENT DATE: 20221020
